FAERS Safety Report 9602787 (Version 1)
Quarter: 2013Q4

REPORT INFORMATION
  Report Type: Spontaneous
  Country: US (occurrence: None)
  Receive Date: 20131003
  Receipt Date: 20131003
  Transmission Date: 20140711
  Serious: Yes (Disabling, Other)
  Sender: FDA-Public Use
  Company Number: SYM-2013-11022

PATIENT
  Age: 17 Year
  Sex: Male
  Weight: 97.52 kg

DRUGS (1)
  1. SOLODYN [Suspect]
     Indication: ACNE
     Route: 048
     Dates: start: 201308

REACTIONS (2)
  - Tinnitus [None]
  - Deafness [None]
